FAERS Safety Report 17041307 (Version 1)
Quarter: 2019Q4

REPORT INFORMATION
  Report Type: Spontaneous
  Country: US (occurrence: US)
  Receive Date: 20191118
  Receipt Date: 20191118
  Transmission Date: 20200122
  Serious: Yes (Hospitalization, Other)
  Sender: FDA-Public Use
  Company Number: US-CIPLA LTD.-2019US07437

PATIENT

DRUGS (4)
  1. PANTOPRAZOLE [Concomitant]
     Active Substance: PANTOPRAZOLE
     Indication: PRODUCT USED FOR UNKNOWN INDICATION
     Dosage: UNK, DRIP
     Route: 065
  2. WARFARIN [Suspect]
     Active Substance: WARFARIN
     Indication: ARTERIOVENOUS FISTULA THROMBOSIS
     Dosage: UNK
     Route: 065
  3. WARFARIN [Suspect]
     Active Substance: WARFARIN
     Indication: ANTICOAGULANT THERAPY
  4. HEPARIN [Suspect]
     Active Substance: HEPARIN SODIUM
     Indication: ARTERIOVENOUS FISTULA THROMBOSIS
     Dosage: UNK, (DRIP)
     Route: 065

REACTIONS (2)
  - Haematemesis [Unknown]
  - Haematocrit decreased [Unknown]
